FAERS Safety Report 16822290 (Version 3)
Quarter: 2019Q4

REPORT INFORMATION
  Report Type: Spontaneous
  Country: US (occurrence: US)
  Receive Date: 20190918
  Receipt Date: 20191202
  Transmission Date: 20200122
  Serious: No
  Sender: FDA-Public Use
  Company Number: US-PFIZER INC-2019399786

PATIENT
  Age: 77 Year
  Sex: Female
  Weight: 52.61 kg

DRUGS (3)
  1. LETROZOLE. [Concomitant]
     Active Substance: LETROZOLE
     Dosage: 2.5 MG, UNK
     Dates: start: 20190809
  2. IBRANCE [Suspect]
     Active Substance: PALBOCICLIB
     Indication: BREAST CANCER METASTATIC
     Dosage: 125 MG, UNK
     Dates: start: 20190820
  3. IBRANCE [Suspect]
     Active Substance: PALBOCICLIB
     Dosage: 100 MG, CYCLIC (21 DAYS ON 7 DAYS OFF)
     Dates: start: 20190918

REACTIONS (17)
  - Anosmia [Unknown]
  - Madarosis [Unknown]
  - Dizziness postural [Unknown]
  - Alopecia [Unknown]
  - Asthenia [Unknown]
  - Eating disorder [Unknown]
  - Blood count abnormal [Unknown]
  - Ageusia [Unknown]
  - Dry skin [Unknown]
  - Red blood cell count decreased [Unknown]
  - Pruritus [Unknown]
  - Fatigue [Unknown]
  - Irritability [Unknown]
  - Eye pruritus [Unknown]
  - Chills [Unknown]
  - Constipation [Unknown]
  - Taste disorder [Unknown]
